FAERS Safety Report 11025763 (Version 1)
Quarter: 2015Q2

REPORT INFORMATION
  Report Type: Spontaneous
  Country: US (occurrence: None)
  Receive Date: 20150413
  Receipt Date: 20150413
  Transmission Date: 20150821
  Serious: Yes (Other)
  Sender: FDA-Public Use
  Company Number: None

PATIENT
  Age: 43 Year
  Sex: Female

DRUGS (1)
  1. CAPECITABINE. [Suspect]
     Active Substance: CAPECITABINE
     Indication: COLON CANCER
     Dosage: 4 TABLETS, TWICE DAILY, BY MOUTH
     Route: 048
     Dates: start: 20150210

REACTIONS (3)
  - Paraesthesia [None]
  - Stomatitis [None]
  - Hypoaesthesia [None]

NARRATIVE: CASE EVENT DATE: 20150410
